FAERS Safety Report 18023692 (Version 3)
Quarter: 2020Q3

REPORT INFORMATION
  Report Type: Report from Study
  Country: US (occurrence: US)
  Receive Date: 20200714
  Receipt Date: 20200806
  Transmission Date: 20201103
  Serious: Yes (Hospitalization, Other)
  Sender: FDA-Public Use
  Company Number: US-ACTELION-A-NJ2019-187231

PATIENT
  Age: 74 Year
  Sex: Female
  Weight: 68.48 kg

DRUGS (6)
  1. OPSUMIT [Suspect]
     Active Substance: MACITENTAN
     Indication: PULMONARY HYPERTENSION
     Dosage: 10 MG, QD
     Route: 048
     Dates: start: 20190213
  2. OPSUMIT [Suspect]
     Active Substance: MACITENTAN
     Dosage: 10 MG, QD
     Route: 048
     Dates: start: 20200228
  3. SILDENAFIL. [Concomitant]
     Active Substance: SILDENAFIL
     Dosage: 20 MG, TID
     Dates: start: 20191220
  4. GABAPENTIN. [Concomitant]
     Active Substance: GABAPENTIN
     Dosage: 1200 MG, TID
     Dates: start: 20191026
  5. FUROSEMIDE. [Concomitant]
     Active Substance: FUROSEMIDE
     Dosage: 40 MG
     Route: 048
     Dates: start: 20170103, end: 20200618
  6. METHOTREXATE. [Concomitant]
     Active Substance: METHOTREXATE
     Dosage: 20 MG, Q1WEEK
     Dates: start: 20200331

REACTIONS (17)
  - Rehabilitation therapy [Unknown]
  - Delirium [Unknown]
  - Polyuria [Recovered/Resolved]
  - Fall [Unknown]
  - Catheterisation cardiac [Recovered/Resolved]
  - Cardiac failure congestive [Unknown]
  - Vertigo [Unknown]
  - Movement disorder [Unknown]
  - Pulmonary arterial pressure increased [Not Recovered/Not Resolved]
  - Headache [Unknown]
  - Hospitalisation [Unknown]
  - Urinary tract infection [Unknown]
  - Dizziness [Recovered/Resolved]
  - Presyncope [Recovered/Resolved]
  - Fluid overload [Recovered/Resolved]
  - Blood pressure decreased [Unknown]
  - Pulmonary hypertension [Unknown]

NARRATIVE: CASE EVENT DATE: 20200617
